FAERS Safety Report 12651149 (Version 1)
Quarter: 2016Q3

REPORT INFORMATION
  Report Type: Spontaneous
  Country: US (occurrence: US)
  Receive Date: 20160815
  Receipt Date: 20160815
  Transmission Date: 20161109
  Serious: No
  Sender: FDA-Public Use
  Company Number: US-JAZZ-2016-US-005219

PATIENT
  Sex: Female

DRUGS (36)
  1. BELVIQ [Concomitant]
     Active Substance: LORCASERIN HYDROCHLORIDE
  2. LYRICA [Concomitant]
     Active Substance: PREGABALIN
  3. MOBIC [Concomitant]
     Active Substance: MELOXICAM
  4. FERROUS SULFATE. [Concomitant]
     Active Substance: FERROUS SULFATE
  5. CRESTOR [Concomitant]
     Active Substance: ROSUVASTATIN CALCIUM
  6. METHYLPHENIDATE. [Concomitant]
     Active Substance: METHYLPHENIDATE
  7. ZOFRAN [Concomitant]
     Active Substance: ONDANSETRON HYDROCHLORIDE
  8. CLONAZEPAM. [Suspect]
     Active Substance: CLONAZEPAM
     Indication: PRODUCT USED FOR UNKNOWN INDICATION
     Dosage: UNK
  9. DEXILANT DR [Concomitant]
  10. PLAVIX [Concomitant]
     Active Substance: CLOPIDOGREL BISULFATE
  11. DHEA [Concomitant]
     Active Substance: PRASTERONE
  12. MEDROL [Concomitant]
     Active Substance: METHYLPREDNISOLONE
  13. CYMBALTA [Concomitant]
     Active Substance: DULOXETINE HYDROCHLORIDE
  14. BUTRANS [Concomitant]
     Active Substance: BUPRENORPHINE
  15. METFORMIN HYDROCHLORIDE. [Concomitant]
     Active Substance: METFORMIN HYDROCHLORIDE
  16. ALLEGRA ALLERGY [Concomitant]
     Active Substance: FEXOFENADINE HYDROCHLORIDE
  17. MAGNESIUM OXIDE. [Concomitant]
     Active Substance: MAGNESIUM OXIDE
  18. BACTRIM DS [Concomitant]
     Active Substance: SULFAMETHOXAZOLE\TRIMETHOPRIM
  19. FLEXERIL [Concomitant]
     Active Substance: CYCLOBENZAPRINE HYDROCHLORIDE
  20. PLAQUENIL [Concomitant]
     Active Substance: HYDROXYCHLOROQUINE SULFATE
  21. SPIRONOLACTONE. [Concomitant]
     Active Substance: SPIRONOLACTONE
  22. NEUPRO [Concomitant]
     Active Substance: ROTIGOTINE
  23. XYREM [Suspect]
     Active Substance: SODIUM OXYBATE
     Indication: NARCOLEPSY
     Dosage: 2.25 G, BID
     Route: 048
     Dates: start: 201602, end: 201602
  24. XYREM [Suspect]
     Active Substance: SODIUM OXYBATE
     Dosage: 4.5 G, AS FIRST DOSE
     Route: 048
  25. LEXAPRO [Concomitant]
     Active Substance: ESCITALOPRAM OXALATE
  26. XYREM [Suspect]
     Active Substance: SODIUM OXYBATE
     Dosage: DOSE ADJUSTMENTS
     Route: 048
  27. PHENERGAN [Suspect]
     Active Substance: PROMETHAZINE HYDROCHLORIDE
     Indication: PRODUCT USED FOR UNKNOWN INDICATION
     Dosage: UNK
  28. METHOTREXATE. [Concomitant]
     Active Substance: METHOTREXATE
  29. LASIX [Concomitant]
     Active Substance: FUROSEMIDE
  30. SALAGEN [Concomitant]
     Active Substance: PILOCARPINE HYDROCHLORIDE
  31. TUMS SMOOTHIES [Concomitant]
     Active Substance: CALCIUM CARBONATE
  32. ATENOLOL. [Concomitant]
     Active Substance: ATENOLOL
  33. SYNTHROID [Concomitant]
     Active Substance: LEVOTHYROXINE SODIUM
  34. FOLIC ACID. [Concomitant]
     Active Substance: FOLIC ACID
  35. POTASSIUM CL ER [Concomitant]
     Active Substance: POTASSIUM CHLORIDE
  36. HYDROCODONE / IBUPROFEN [Concomitant]
     Active Substance: HYDROCODONE BITARTRATE\IBUPROFEN

REACTIONS (6)
  - Acne [Recovering/Resolving]
  - Anxiety [Unknown]
  - Blood pressure increased [Recovering/Resolving]
  - Cystitis [Not Recovered/Not Resolved]
  - Labelled drug-drug interaction medication error [Unknown]
  - Nausea [Recovering/Resolving]

NARRATIVE: CASE EVENT DATE: 2016
